FAERS Safety Report 9190126 (Version 1)
Quarter: 2013Q1

REPORT INFORMATION
  Report Type: Report from Study
  Country: EG (occurrence: EG)
  Receive Date: 20130326
  Receipt Date: 20130326
  Transmission Date: 20140127
  Serious: Yes (Death)
  Sender: FDA-Public Use
  Company Number: EG-SANOFI-AVENTIS-2013SA028380

PATIENT
  Age: 39 Year
  Sex: Male

DRUGS (1)
  1. LANTUS [Suspect]
     Indication: TYPE 2 DIABETES MELLITUS
     Dosage: DOSE:15 UNIT(S)
     Route: 058
     Dates: start: 20110815, end: 20130303

REACTIONS (1)
  - Myocardial infarction [Fatal]
